FAERS Safety Report 9332451 (Version 1)
Quarter: 2013Q2

REPORT INFORMATION
  Report Type: Spontaneous
  Country: FR (occurrence: FR)
  Receive Date: 20130606
  Receipt Date: 20130606
  Transmission Date: 20140414
  Serious: Yes (Life-Threatening, Hospitalization)
  Sender: FDA-Public Use
  Company Number: FR-ROCHE-1231279

PATIENT
  Age: 75 Year
  Sex: Male

DRUGS (16)
  1. RIVOTRIL [Suspect]
     Indication: EPILEPSY
     Route: 042
     Dates: start: 20130514, end: 20130514
  2. KARDEGIC [Concomitant]
     Route: 065
  3. SODIUM BICARBONATE [Concomitant]
  4. DORZOLAMIDE [Concomitant]
  5. INEXIUM [Concomitant]
     Route: 065
  6. SERETIDE [Concomitant]
     Dosage: 250/25 UG/DOSE
     Route: 065
  7. LASILIX [Concomitant]
     Route: 065
  8. MECIR [Concomitant]
     Dosage: LP 0.4 MG
     Route: 065
  9. IMOVANE [Concomitant]
     Route: 065
  10. GLUCOPHAGE [Concomitant]
     Route: 065
  11. MIRCERA [Concomitant]
     Dosage: 50 UG/0.3 ML
     Route: 065
  12. TEMERIT [Concomitant]
     Dosage: 5 MG
     Route: 065
  13. DAFALGAN [Concomitant]
     Route: 065
  14. DIFFU K [Concomitant]
     Route: 065
  15. PRAVASTATIN SODIUM [Concomitant]
  16. TARDYFERON (FRANCE) [Concomitant]
     Route: 065

REACTIONS (2)
  - Apnoea [Recovered/Resolved]
  - Bradycardia [Recovered/Resolved]
